FAERS Safety Report 7616676-1 (Version None)
Quarter: 2011Q3

REPORT INFORMATION
  Report Type: 
  Country: None (occurrence: None)
  Receive Date: 20110717
  Receipt Date: 20110705
  Transmission Date: 20111222
  Serious: Yes (Other)
  Sender: FDA-Public Use
  Company Number: PHHY2011US51723

PATIENT
  Sex: Male
  Weight: 114.74 kg

DRUGS (6)
  1. GLEEVEC [Suspect]
     Indication: CHRONIC MYELOID LEUKAEMIA
     Dosage: 800 MG,DAILY
     Route: 048
     Dates: start: 20081230
  2. ASPIRIN [Suspect]
     Dosage: UNK
     Route: 048
     Dates: end: 20110529
  3. PLAVIX [Suspect]
     Dosage: UNK
     Route: 048
     Dates: end: 20110529
  4. CARAFATE [Concomitant]
     Dosage: UNK
  5. CALCIUM CARBONATE [Concomitant]
     Dosage: UNK
  6. PEPCID [Concomitant]
     Dosage: UNK

REACTIONS (3)
  - GASTROINTESTINAL ULCER [None]
  - HAEMORRHOIDS [None]
  - HAEMATOCHEZIA [None]
